FAERS Safety Report 9789827 (Version 5)
Quarter: 2014Q1

REPORT INFORMATION
  Report Type: Spontaneous
  Country: US (occurrence: US)
  Receive Date: 20131231
  Receipt Date: 20140116
  Transmission Date: 20141002
  Serious: Yes (Other)
  Sender: FDA-Public Use
  Company Number: US-JNJFOC-20131214903

PATIENT
  Sex: 0

DRUGS (2)
  1. XARELTO [Suspect]
     Indication: CEREBROVASCULAR ACCIDENT PROPHYLAXIS
     Route: 048
     Dates: end: 201312
  2. XARELTO [Suspect]
     Indication: ATRIAL FIBRILLATION
     Route: 048
     Dates: end: 201312

REACTIONS (1)
  - Haemorrhagic stroke [Recovered/Resolved]
